FAERS Safety Report 18593201 (Version 1)
Quarter: 2020Q4

REPORT INFORMATION
  Report Type: Spontaneous
  Country: US (occurrence: US)
  Receive Date: 20201208
  Receipt Date: 20201208
  Transmission Date: 20210114
  Serious: No
  Sender: FDA-Public Use
  Company Number: US-FRESENIUS MEDICAL CARE RENAL THERAPIES GROUP-FMC-2012-001519

PATIENT
  Age: 55 Year
  Sex: Female

DRUGS (15)
  1. NYSTATIN. [Suspect]
     Active Substance: NYSTATIN
     Indication: PRODUCT USED FOR UNKNOWN INDICATION
  2. ROSUVASTIN [Concomitant]
     Active Substance: ROSUVASTATIN
  3. PREDNISONE. [Concomitant]
     Active Substance: PREDNISONE
  4. CLONAZEPAM. [Concomitant]
     Active Substance: CLONAZEPAM
  5. MONOVISC [Concomitant]
     Active Substance: DEVICE
  6. TRAMADOL. [Concomitant]
     Active Substance: TRAMADOL
  7. ANORO ELLIPTA [Concomitant]
     Active Substance: UMECLIDINIUM BROMIDE\VILANTEROL TRIFENATATE
  8. PROMETHAZINE [Concomitant]
     Active Substance: PROMETHAZINE HYDROCHLORIDE
  9. ALENDRONATE [Concomitant]
     Active Substance: ALENDRONATE SODIUM
  10. PROTON PUMP INHIBITOR [Suspect]
     Active Substance: UNSPECIFIED INGREDIENT
     Indication: PRODUCT USED FOR UNKNOWN INDICATION
  11. OXYCODONE [Concomitant]
     Active Substance: OXYCODONE
  12. DULOXETINE. [Concomitant]
     Active Substance: DULOXETINE
  13. METOPROLOL SUCCINATE. [Concomitant]
     Active Substance: METOPROLOL SUCCINATE
  14. CELECOXIB. [Concomitant]
     Active Substance: CELECOXIB
  15. PHOSLO [Suspect]
     Active Substance: CALCIUM ACETATE
     Indication: OSTEOARTHRITIS
     Dosage: 80 MCG SQ DAILY
     Route: 058
     Dates: start: 20200717

REACTIONS (10)
  - Migraine [Not Recovered/Not Resolved]
  - Abdominal discomfort [Not Recovered/Not Resolved]
  - Dizziness [Not Recovered/Not Resolved]
  - Headache [Not Recovered/Not Resolved]
  - Product use in unapproved indication [Unknown]
  - Vomiting [Not Recovered/Not Resolved]
  - Fear of injection [Not Recovered/Not Resolved]
  - Nausea [Not Recovered/Not Resolved]
  - Constipation [Not Recovered/Not Resolved]
  - Product dose omission issue [Not Recovered/Not Resolved]
